FAERS Safety Report 8693477 (Version 3)
Quarter: 2013Q1

REPORT INFORMATION
  Report Type: Spontaneous
  Country: BR (occurrence: BR)
  Receive Date: 20120730
  Receipt Date: 20130301
  Transmission Date: 20140127
  Serious: Yes (Life-Threatening, Hospitalization, Other)
  Sender: FDA-Public Use
  Company Number: BR-ROCHE-1094252

PATIENT
  Sex: Female

DRUGS (4)
  1. XOLAIR [Suspect]
     Indication: ASTHMA
     Route: 065
  2. AMIODARONE [Concomitant]
  3. MONTELUKAST SODIUM [Concomitant]
     Dosage: DRUG NAME REPORTED AS MONTELAIR AND SINGULAIR
     Route: 065
  4. SERETIDE DISKUS [Concomitant]
     Dosage: 50/250 MG
     Route: 065

REACTIONS (5)
  - Cardio-respiratory arrest [Recovering/Resolving]
  - Arrhythmia [Recovering/Resolving]
  - Pneumonia [Recovering/Resolving]
  - Asthma [Recovering/Resolving]
  - Malaise [Recovering/Resolving]
